FAERS Safety Report 25048654 (Version 2)
Quarter: 2025Q2

REPORT INFORMATION
  Report Type: Spontaneous
  Country: HU (occurrence: HU)
  Receive Date: 20250307
  Receipt Date: 20250514
  Transmission Date: 20250716
  Serious: Yes (Hospitalization)
  Sender: BIOGEN
  Company Number: HU-BIOGEN-2024BI01267675

PATIENT
  Age: 33 Year
  Sex: Female

DRUGS (6)
  1. TYSABRI [Suspect]
     Active Substance: NATALIZUMAB
     Indication: Relapsing-remitting multiple sclerosis
     Route: 050
     Dates: start: 202103
  2. TYSABRI [Suspect]
     Active Substance: NATALIZUMAB
     Route: 050
  3. UTROGESTAN [Concomitant]
     Active Substance: PROGESTERONE
     Indication: In vitro fertilisation
     Route: 050
  4. Zivafert [Concomitant]
     Indication: In vitro fertilisation
     Route: 050
  5. PROGESTERONE [Concomitant]
     Active Substance: PROGESTERONE
     Indication: In vitro fertilisation
     Route: 050
  6. Salofalk [Concomitant]
     Indication: Crohn^s disease
     Route: 050

REACTIONS (3)
  - Caesarean section [Recovered/Resolved]
  - Maternal exposure during pregnancy [Recovered/Resolved]
  - Prescribed underdose [Not Recovered/Not Resolved]

NARRATIVE: CASE EVENT DATE: 20210301
